FAERS Safety Report 8575116-9 (Version None)
Quarter: 2012Q3

REPORT INFORMATION
  Report Type: 
  Country: None (occurrence: None)
  Receive Date: 20120807
  Receipt Date: 20120727
  Transmission Date: 20120928
  Serious: Yes (Hospitalization)
  Sender: FDA-Public Use
  Company Number: GB-NOVOPROD-356824

PATIENT
  Age: 57 Year
  Sex: Male
  Weight: 118 kg

DRUGS (7)
  1. SIMVASTATIN [Concomitant]
  2. OMEPRAZOLE [Concomitant]
  3. DIGOXIN [Concomitant]
  4. WARFARIN SODIUM [Concomitant]
  5. VICTOZA [Suspect]
     Indication: PRODUCT USED FOR UNKNOWN INDICATION
     Route: 058
  6. VICTOZA [Suspect]
     Route: 065
  7. LISINOPRIL [Concomitant]

REACTIONS (3)
  - PAROTID GLAND INFLAMMATION [None]
  - PAROTID GLAND ENLARGEMENT [None]
  - SIALOADENITIS [None]
